FAERS Safety Report 6538804-1 (Version None)
Quarter: 2010Q1

REPORT INFORMATION
  Report Type: 
  Country: None (occurrence: None)
  Receive Date: 20100114
  Receipt Date: 20100114
  Transmission Date: 20100710
  Serious: Yes (Other)
  Sender: FDA-Public Use
  Company Number: None

PATIENT
  Sex: Male
  Weight: 70.3075 kg

DRUGS (1)
  1. PROMUS DRUG ELUTING STENT 3.0MM X 10MM SIZE ABBOTT/BOSTON SCIENTIFIC [Suspect]
     Indication: CORONARY ARTERY OCCLUSION
     Dosage: 3.0MM X 18MM
     Dates: start: 20090820, end: 20100113

REACTIONS (4)
  - CHEST PAIN [None]
  - DRUG HYPERSENSITIVITY [None]
  - NO THERAPEUTIC RESPONSE [None]
  - RASH PRURITIC [None]
